FAERS Safety Report 6642844-1 (Version None)
Quarter: 2010Q1

REPORT INFORMATION
  Report Type: 
  Country: None (occurrence: None)
  Receive Date: 20100316
  Receipt Date: 20100305
  Transmission Date: 20100710
  Serious: Yes (Other)
  Sender: FDA-Public Use
  Company Number: 230199J10GBR

PATIENT
  Age: 46 Year
  Sex: Female

DRUGS (1)
  1. REBIF [Suspect]
     Indication: DRUG USE FOR UNKNOWN INDICATION
     Dosage: 44 MCG
     Dates: start: 20100205

REACTIONS (5)
  - FEELING ABNORMAL [None]
  - HEADACHE [None]
  - KIDNEY INFECTION [None]
  - LIBIDO DECREASED [None]
  - MOOD ALTERED [None]
